FAERS Safety Report 9245984 (Version 1)
Quarter: 2013Q2

REPORT INFORMATION
  Report Type: Spontaneous
  Country: ES (occurrence: ES)
  Receive Date: 20130422
  Receipt Date: 20130422
  Transmission Date: 20140414
  Serious: Yes (Other)
  Sender: FDA-Public Use
  Company Number: ES-ROCHE-1217023

PATIENT
  Age: 44 Year
  Sex: Female

DRUGS (3)
  1. HERCEPTIN [Suspect]
     Indication: BREAST CANCER
     Route: 065
     Dates: start: 20120130
  2. PACLITAXEL [Suspect]
     Indication: BREAST CANCER
     Route: 065
     Dates: start: 20120130, end: 20120206
  3. ABRAXANE [Concomitant]

REACTIONS (2)
  - Hypotension [Recovered/Resolved]
  - Flushing [Recovered/Resolved]
